FAERS Safety Report 7776473-3 (Version None)
Quarter: 2011Q3

REPORT INFORMATION
  Report Type: 
  Country: None (occurrence: None)
  Receive Date: 20110926
  Receipt Date: 20110913
  Transmission Date: 20111222
  Serious: Yes (Hospitalization, Other)
  Sender: FDA-Public Use
  Company Number: US-ELI_LILLY_AND_COMPANY-US201106008980

PATIENT
  Sex: Female

DRUGS (4)
  1. FORTEO [Suspect]
     Dosage: UNK
  2. FERROUS SULFATE TAB [Concomitant]
     Dosage: UNK
  3. TRAMADOL [Concomitant]
  4. FORTEO [Suspect]
     Dosage: UNK

REACTIONS (13)
  - MASS [None]
  - GASTROINTESTINAL HAEMORRHAGE [None]
  - VERTEBROPLASTY [None]
  - VASCULAR INJURY [None]
  - GAIT DISTURBANCE [None]
  - COLITIS [None]
  - INTESTINAL OBSTRUCTION [None]
  - CATARACT OPERATION [None]
  - BACK PAIN [None]
  - FALL [None]
  - NERVE INJURY [None]
  - DYSSTASIA [None]
  - PAIN IN EXTREMITY [None]
